FAERS Safety Report 8525635-6 (Version None)
Quarter: 2012Q3

REPORT INFORMATION
  Report Type: 
  Country: None (occurrence: None)
  Receive Date: 20120720
  Receipt Date: 20120717
  Transmission Date: 20120928
  Serious: Yes (Other)
  Sender: FDA-Public Use
  Company Number: US-PFIZER INC-2012172881

PATIENT
  Sex: Female
  Weight: 58.957 kg

DRUGS (4)
  1. PREMARIN [Suspect]
     Dosage: UNK
     Route: 067
     Dates: start: 20120628
  2. PREMARIN [Suspect]
     Indication: VULVOVAGINAL DRYNESS
     Dosage: UNK
     Route: 048
  3. OXYBUTYNIN [Concomitant]
     Dosage: UNK, 2X/DAY
  4. PREMARIN [Suspect]
     Indication: VULVOVAGINAL DRYNESS
     Dosage: UNK
     Route: 067

REACTIONS (5)
  - BLADDER PROLAPSE [None]
  - POLLAKIURIA [None]
  - VULVOVAGINAL PAIN [None]
  - VULVOVAGINAL DRYNESS [None]
  - BLADDER SPASM [None]
